FAERS Safety Report 5199109-7 (Version None)
Quarter: 2007Q1

REPORT INFORMATION
  Report Type: 
  Country: None (occurrence: None)
  Receive Date: 20070104
  Receipt Date: 20060717
  Transmission Date: 20070707
  Serious: Yes (Hospitalization)
  Sender: FDA-Public Use
  Company Number: US-SHR-US-2006-037003

PATIENT
  Age: 45 Year
  Sex: Male

DRUGS (1)
  1. BETASERON [Suspect]
     Dates: start: 20051004, end: 20060501

REACTIONS (3)
  - BACK PAIN [None]
  - HEADACHE [None]
  - SARCOIDOSIS [None]
